FAERS Safety Report 16747452 (Version 4)
Quarter: 2020Q2

REPORT INFORMATION
  Report Type: Report from Study
  Country: US (occurrence: US)
  Receive Date: 20190827
  Receipt Date: 20200508
  Transmission Date: 20200713
  Serious: Yes (Hospitalization, Other)
  Sender: FDA-Public Use
  Company Number: US-ACTELION-A-NJ2019-188165

PATIENT
  Age: 62 Year
  Sex: Female

DRUGS (5)
  1. LACTULOSE. [Concomitant]
     Active Substance: LACTULOSE
     Dosage: 20 G, BID
  2. LACTULOSE. [Concomitant]
     Active Substance: LACTULOSE
     Indication: HEPATIC ENCEPHALOPATHY
     Dosage: 20 G, TID
     Route: 048
     Dates: start: 20190716
  3. OPSUMIT [Suspect]
     Active Substance: MACITENTAN
     Indication: PULMONARY ARTERIAL HYPERTENSION
     Dosage: 10 MG, QD
     Route: 048
     Dates: start: 20161114
  4. RIFAXIMIN. [Concomitant]
     Active Substance: RIFAXIMIN
     Indication: HEPATIC ENCEPHALOPATHY
     Dosage: 550 MG, BID
     Route: 048
     Dates: start: 20200130
  5. LACTULOSE. [Concomitant]
     Active Substance: LACTULOSE
     Dosage: 20 G, QD
     Route: 048
     Dates: start: 20200130

REACTIONS (20)
  - Varices oesophageal [Recovered/Resolved]
  - Blood bilirubin increased [Recovered/Resolved]
  - Asthenia [Recovered/Resolved]
  - Hepatic steatosis [Unknown]
  - Lethargy [Recovered/Resolved]
  - Disorientation [Recovered/Resolved]
  - Splenomegaly [Recovered/Resolved]
  - Infection [Recovered/Resolved]
  - Confusional state [Recovered/Resolved]
  - Portal hypertension [Recovered/Resolved]
  - White blood cell count decreased [Recovered/Resolved]
  - Hepatic cirrhosis [Recovered/Resolved]
  - Blood albumin decreased [Recovered/Resolved]
  - Hypophagia [Recovered/Resolved]
  - Breast cancer metastatic [Unknown]
  - Hepatic encephalopathy [Recovered/Resolved]
  - Product administration error [Recovered/Resolved]
  - Ammonia increased [Recovered/Resolved]
  - Dehydration [Recovered/Resolved]
  - Aspartate aminotransferase increased [Recovered/Resolved]

NARRATIVE: CASE EVENT DATE: 20161202
